FAERS Safety Report 16917217 (Version 1)
Quarter: 2019Q4

REPORT INFORMATION
  Report Type: Spontaneous
  Country: SE (occurrence: SE)
  Receive Date: 20191015
  Receipt Date: 20191015
  Transmission Date: 20200122
  Serious: Yes (Hospitalization)
  Sender: FDA-Public Use
  Company Number: SE-TEVA-2019-SE-1120405

PATIENT
  Age: 17 Year
  Sex: Female

DRUGS (1)
  1. PROMETHAZINE [Suspect]
     Active Substance: PROMETHAZINE HYDROCHLORIDE
     Dosage: 750 MG
     Route: 048
     Dates: start: 20181210, end: 20181210

REACTIONS (7)
  - Depressed level of consciousness [Unknown]
  - Intentional overdose [Unknown]
  - Tachycardia [Unknown]
  - Vision blurred [Unknown]
  - Dizziness [Unknown]
  - Pallor [Unknown]
  - Intentional self-injury [Unknown]

NARRATIVE: CASE EVENT DATE: 20181210
